FAERS Safety Report 26110987 (Version 1)
Quarter: 2025Q4

REPORT INFORMATION
  Report Type: Spontaneous
  Country: US (occurrence: US)
  Receive Date: 20251202
  Receipt Date: 20251202
  Transmission Date: 20260117
  Serious: No
  Sender: IPSEN BIOPHARMACEUTICALS, INC.
  Company Number: US-IPSEN Group, Research and Development-2025-29414

PATIENT
  Sex: Female

DRUGS (5)
  1. IQIRVO [Suspect]
     Active Substance: ELAFIBRANOR
     Indication: Primary biliary cholangitis
     Dosage: DAILY
     Route: 048
  2. FOLIC ACID [Concomitant]
     Active Substance: FOLIC ACID
  3. LISINOPRIL [Concomitant]
     Active Substance: LISINOPRIL
  4. URSODIOL [Concomitant]
     Active Substance: URSODIOL
  5. CALCIUM + VITAMIN D3 BONE [Concomitant]

REACTIONS (1)
  - Oral mucosal exfoliation [Unknown]
